FAERS Safety Report 16526170 (Version 2)
Quarter: 2019Q4

REPORT INFORMATION
  Report Type: Report from Study
  Country: US (occurrence: US)
  Receive Date: 20190703
  Receipt Date: 20191122
  Transmission Date: 20200122
  Serious: Yes (Hospitalization)
  Sender: FDA-Public Use
  Company Number: US-CELGENEUS-USA-20190609428

PATIENT
  Age: 40 Year
  Sex: Male
  Weight: 103.51 kg

DRUGS (2)
  1. VIDAZA [Suspect]
     Active Substance: AZACITIDINE
     Dosage: 180 MILLIGRAM
     Route: 041
     Dates: start: 20161205, end: 20170512
  2. VIDAZA [Suspect]
     Active Substance: AZACITIDINE
     Indication: MYELODYSPLASTIC SYNDROME
     Dosage: 180 MILLIGRAM
     Route: 041
     Dates: start: 20150817, end: 20150821

REACTIONS (2)
  - Depression [Recovered/Resolved]
  - Syncope [Recovered/Resolved]

NARRATIVE: CASE EVENT DATE: 20150914
